FAERS Safety Report 8805488 (Version 1)
Quarter: 2012Q4

REPORT INFORMATION
  Report Type: 
  Country: AT (occurrence: AT)
  Receive Date: 20120924
  Receipt Date: 20120924
  Transmission Date: 20130627
  Serious: Yes (Other)
  Sender: FDA-Public Use
  Company Number: AT-UCBSA-066555

PATIENT
  Age: 70 Year
  Sex: Male

DRUGS (2)
  1. VIMPAT [Suspect]
     Indication: STATUS EPILEPTICUS
     Route: 042
  2. KEPPRA [Concomitant]
     Dosage: UNKNOWN

REACTIONS (1)
  - Tachycardia [Unknown]
